FAERS Safety Report 23989250 (Version 2)
Quarter: 2024Q3

REPORT INFORMATION
  Report Type: Spontaneous
  Country: IT (occurrence: IT)
  Receive Date: 20240619
  Receipt Date: 20240702
  Transmission Date: 20241017
  Serious: Yes (Hospitalization)
  Sender: NOVARTIS
  Company Number: None

PATIENT
  Age: 8 Year
  Sex: Female
  Weight: 25 kg

DRUGS (2)
  1. EVEROLIMUS [Suspect]
     Active Substance: EVEROLIMUS
     Indication: Epilepsy
     Dosage: 4 MG/DIE
     Route: 048
     Dates: start: 20230110, end: 20230618
  2. VALPROATE SODIUM [Concomitant]
     Active Substance: VALPROATE SODIUM
     Indication: Product used for unknown indication
     Dosage: 500 MG DUE VOLTE DIE
     Route: 065

REACTIONS (2)
  - Pneumonia bacterial [Recovered/Resolved]
  - Neutrophilia [Unknown]

NARRATIVE: CASE EVENT DATE: 20230618
